FAERS Safety Report 10519561 (Version 2)
Quarter: 2014Q4

REPORT INFORMATION
  Report Type: Spontaneous
  Country: US (occurrence: US)
  Receive Date: 20141015
  Receipt Date: 20141015
  Transmission Date: 20150528
  Serious: Yes (Other)
  Sender: FDA-Public Use
  Company Number: US-TEVA-506853USA

PATIENT
  Sex: Female

DRUGS (1)
  1. CLONAZEPAM. [Suspect]
     Active Substance: CLONAZEPAM
     Dosage: 1.5 MILLIGRAM DAILY;
     Dates: start: 2014

REACTIONS (7)
  - Arthralgia [Recovering/Resolving]
  - Skin discolouration [Recovering/Resolving]
  - Raynaud^s phenomenon [Recovering/Resolving]
  - Skin burning sensation [Recovering/Resolving]
  - Neuropathy peripheral [Recovering/Resolving]
  - Autoimmune disorder [Recovering/Resolving]
  - Rash [Recovering/Resolving]
